FAERS Safety Report 6448139-3 (Version None)
Quarter: 2009Q4

REPORT INFORMATION
  Report Type: 
  Country: None (occurrence: None)
  Receive Date: 20091110
  Receipt Date: 20080930
  Transmission Date: 20100525
  Serious: Yes (Other)
  Sender: FDA-Public Use
  Company Number: 100000603

PATIENT
  Age: 77 Year
  Sex: Female

DRUGS (11)
  1. TIAZAC [Suspect]
     Indication: HYPERTENSION
     Dosage: 300 MG (300 MG, 1 IN 1 D) ORAL
     Route: 048
     Dates: start: 20040101
  2. BYSTOLIC [Suspect]
     Indication: HYPERTENSION
     Dosage: 5 MG (5 MG, 1 IN 1 D) ORAL; 10 MG (10 MG, 1 IN 1 D) ORAL
     Route: 048
     Dates: start: 20080701, end: 20080904
  3. BYSTOLIC [Suspect]
     Indication: HYPERTENSION
     Dosage: 5 MG (5 MG, 1 IN 1 D) ORAL; 10 MG (10 MG, 1 IN 1 D) ORAL
     Route: 048
     Dates: start: 20080905
  4. FLOVENT (INHALANT) [Concomitant]
  5. PROVENTIL (INHALANT) [Concomitant]
  6. DYAZIDE [Concomitant]
  7. SYNTHROID [Concomitant]
  8. CLARITIN [Concomitant]
  9. LOVASTATIN [Concomitant]
  10. POTASSIUM [Concomitant]
  11. NASAL SPRAY (NOS) [Concomitant]

REACTIONS (7)
  - DRUG INEFFECTIVE [None]
  - DYSPNOEA [None]
  - FALL [None]
  - HEART RATE DECREASED [None]
  - HYPERTENSION [None]
  - HYPOTENSION [None]
  - NERVOUSNESS [None]
